FAERS Safety Report 5711832-1 (Version None)
Quarter: 2008Q2

REPORT INFORMATION
  Report Type: 
  Country: None (occurrence: None)
  Receive Date: 20080421
  Receipt Date: 20080415
  Transmission Date: 20081010
  Serious: Yes (Other)
  Sender: FDA-Public Use
  Company Number: US-PFIZER INC-2008033798

PATIENT
  Sex: Male
  Weight: 79.545 kg

DRUGS (6)
  1. VIAGRA [Suspect]
     Indication: ERECTILE DYSFUNCTION
     Route: 048
  2. FUROSEMIDE [Concomitant]
  3. POTASSIUM CHLORIDE [Concomitant]
  4. ALDACTONE [Concomitant]
  5. LORAZEPAM [Concomitant]
  6. MORPHINE [Concomitant]

REACTIONS (2)
  - BLOOD POTASSIUM DECREASED [None]
  - CYANOPSIA [None]
